FAERS Safety Report 5151732-1 (Version None)
Quarter: 2006Q4

REPORT INFORMATION
  Report Type: 
  Country: None (occurrence: None)
  Receive Date: 20061109
  Receipt Date: 20061004
  Transmission Date: 20070319
  Serious: Yes (Hospitalization, Other)
  Sender: FDA-Public Use
  Company Number: 2006096156

PATIENT
  Age: 44 Year
  Sex: Female
  Weight: 65.7716 kg

DRUGS (1)
  1. CELEBREX [Suspect]
     Indication: ARTHRITIS
     Dosage: 400 MG (200 MG, 1 IN 2 D)
     Route: 048
     Dates: start: 20010901

REACTIONS (5)
  - ARRHYTHMIA [None]
  - CARDIOVASCULAR DISORDER [None]
  - CEREBROVASCULAR ACCIDENT [None]
  - HYPERTENSION [None]
  - POLYTRAUMATISM [None]
